FAERS Safety Report 4729320-8 (Version None)
Quarter: 2005Q3

REPORT INFORMATION
  Report Type: 
  Country: None (occurrence: None)
  Receive Date: 20050729
  Receipt Date: 20050719
  Transmission Date: 20060218
  Serious: Yes (Death)
  Sender: FDA-Public Use
  Company Number: JP-JNJFOC-20040306788

PATIENT
  Sex: Female

DRUGS (19)
  1. DUROTEP [Suspect]
     Indication: CANCER PAIN
     Route: 062
  2. TPN [Concomitant]
     Dates: start: 20040122, end: 20040219
  3. TPN [Concomitant]
     Dates: start: 20040122, end: 20040219
  4. TPN [Concomitant]
     Dates: start: 20040122, end: 20040219
  5. TPN [Concomitant]
     Indication: PARENTERAL NUTRITION
     Dates: start: 20040122, end: 20040219
  6. PANTHENOL [Concomitant]
  7. OXYCODONE HCL [Concomitant]
     Indication: CANCER PAIN
     Route: 048
  8. FLURBIPROFEN AXETIL [Concomitant]
     Indication: CANCER PAIN
  9. HALOPERIDOL [Concomitant]
     Indication: VOMITING
  10. HALOPERIDOL [Concomitant]
  11. FLUNITRAZEPAM [Concomitant]
     Indication: VOMITING
  12. FLUNITRAZEPAM [Concomitant]
  13. HYDROXYZINE HCL [Concomitant]
     Indication: VOMITING
  14. HYDROXYZINE HCL [Concomitant]
  15. DICLOFENAC SODIUM [Concomitant]
     Indication: CANCER PAIN
  16. MORPHINE HCL ELIXIR [Concomitant]
     Indication: CANCER PAIN
  17. CEFOTIAM HYDROCHLORIDE [Concomitant]
     Indication: INFECTION
  18. PETHIDINE HYDROCHLORIDE [Concomitant]
     Indication: PAIN
     Route: 042
  19. AMIKACIN SULFATE [Concomitant]
     Indication: INFECTION

REACTIONS (4)
  - MALIGNANT NEOPLASM PROGRESSION [None]
  - NAUSEA [None]
  - PANCREATIC CARCINOMA [None]
  - VOMITING [None]
